FAERS Safety Report 4551648-5 (Version None)
Quarter: 2005Q1

REPORT INFORMATION
  Report Type: 
  Country: None (occurrence: None)
  Receive Date: 20050110
  Receipt Date: 20041230
  Transmission Date: 20050727
  Serious: Yes (Death, Hospitalization)
  Sender: FDA-Public Use
  Company Number: 2005000644

PATIENT
  Age: 83 Year
  Sex: Female

DRUGS (8)
  1. SPIRONOLACTONE [Suspect]
     Indication: ILL-DEFINED DISORDER
     Dosage: 50 MG (50 MG EVERY DAY), ORAL
     Route: 048
     Dates: end: 20030910
  2. DICLOFENAC SODIUM [Suspect]
     Indication: PAIN
     Dosage: 150 MG (, EVERY DAY), ORAL
     Route: 048
     Dates: start: 20030908, end: 20030910
  3. ZOPICLONE (ZOPICLONE) [Concomitant]
  4. ENALAPRIL MALEATE [Concomitant]
  5. FUROSEMIDE                           (FUROSEMIDE) [Concomitant]
  6. VERAPAMIL [Concomitant]
  7. ACETAMINOPHEN [Concomitant]
  8. TRAMADOL HCL [Concomitant]

REACTIONS (5)
  - BLOOD CREATININE INCREASED [None]
  - BLOOD POTASSIUM INCREASED [None]
  - GENERAL PHYSICAL HEALTH DETERIORATION [None]
  - HAEMATEMESIS [None]
  - NAUSEA [None]
